FAERS Safety Report 4464640-6 (Version None)
Quarter: 2004Q4

REPORT INFORMATION
  Report Type: 
  Country: None (occurrence: None)
  Receive Date: 20041004
  Receipt Date: 20040927
  Transmission Date: 20050328
  Serious: Yes (Death)
  Sender: FDA-Public Use
  Company Number: CA-JNJFOC-20040600246

PATIENT
  Sex: Male
  Weight: 80.29 kg

DRUGS (5)
  1. REMICADE [Suspect]
     Indication: RHEUMATOID ARTHRITIS
     Dosage: 100MG/VIAL.
     Route: 042
  2. PLAQUENIL [Concomitant]
     Route: 049
  3. METHOTREXATE [Concomitant]
     Route: 049
  4. CELEBREX [Concomitant]
     Route: 049
  5. ANTIDEPRESSANT [Concomitant]
     Route: 049

REACTIONS (1)
  - COMPLETED SUICIDE [None]
